FAERS Safety Report 4376276-6 (Version None)
Quarter: 2004Q2

REPORT INFORMATION
  Report Type: 
  Country: None (occurrence: None)
  Receive Date: 20040608
  Receipt Date: 20030123
  Transmission Date: 20050107
  Serious: Yes (Life-Threatening, Hospitalization, Other)
  Sender: FDA-Public Use
  Company Number: 200310639BCC

PATIENT
  Age: 40 Year
  Sex: Female
  Weight: 92.0802 kg

DRUGS (2)
  1. ALEVE [Suspect]
     Indication: DYSMENORRHOEA
     Dosage: PRN, ORAL
     Route: 048
     Dates: start: 20020101, end: 20021028
  2. PEPCID [Concomitant]

REACTIONS (10)
  - ABDOMINAL PAIN UPPER [None]
  - CHILLS [None]
  - GASTRIC ULCER HAEMORRHAGE [None]
  - HAEMATEMESIS [None]
  - HYPERHIDROSIS [None]
  - LOOSE STOOLS [None]
  - MELAENA [None]
  - NAUSEA [None]
  - RECTAL HAEMORRHAGE [None]
  - VOMITING [None]
